FAERS Safety Report 9410738 (Version 2)
Quarter: 2013Q3

REPORT INFORMATION
  Report Type: Spontaneous
  Country: US (occurrence: US)
  Receive Date: 20130719
  Receipt Date: 20130830
  Transmission Date: 20140515
  Serious: Yes (Other)
  Sender: FDA-Public Use
  Company Number: US-ELI_LILLY_AND_COMPANY-US201307003979

PATIENT
  Sex: Male

DRUGS (9)
  1. NEXIUM [Concomitant]
     Dosage: UNK, UNKNOWN
     Route: 065
  2. FLEXERIL [Concomitant]
     Dosage: 10 MG, BID
     Route: 065
  3. LOSARTAN [Concomitant]
     Dosage: UNK, UNKNOWN
     Route: 065
  4. VENLAFAXINE [Concomitant]
     Dosage: UNK, UNKNOWN
     Route: 065
  5. NORCO [Concomitant]
     Dosage: UNK, UNKNOWN
     Route: 065
  6. CYMBALTA [Suspect]
     Indication: PAIN
     Dosage: 90 MG, UNKNOWN
     Route: 048
     Dates: start: 2011
  7. CYMBALTA [Suspect]
     Indication: COMPLEX REGIONAL PAIN SYNDROME
     Dosage: 60 MG, UNKNOWN
     Route: 048
  8. CYMBALTA [Suspect]
     Dosage: 30 MG, UNKNOWN
     Route: 048
     Dates: end: 20130720
  9. METHADONE [Concomitant]
     Dosage: 30 MG, TID
     Route: 065

REACTIONS (14)
  - Swollen tongue [Recovered/Resolved]
  - Gastrooesophageal reflux disease [Not Recovered/Not Resolved]
  - Lip swelling [Recovering/Resolving]
  - Joint stiffness [Unknown]
  - Memory impairment [Not Recovered/Not Resolved]
  - Coordination abnormal [Not Recovered/Not Resolved]
  - Vision blurred [Not Recovered/Not Resolved]
  - Headache [Not Recovered/Not Resolved]
  - Dizziness [Not Recovered/Not Resolved]
  - Nausea [Not Recovered/Not Resolved]
  - Tremor [Not Recovered/Not Resolved]
  - Muscle spasms [Recovered/Resolved]
  - Trismus [Unknown]
  - Bruxism [Unknown]
